APPROVED DRUG PRODUCT: FAMOTIDINE
Active Ingredient: FAMOTIDINE
Strength: 40MG
Dosage Form/Route: TABLET;ORAL
Application: A216441 | Product #002 | TE Code: AB
Applicant: ZYDUS PHARMACEUTICALS USA INC
Approved: Jun 3, 2022 | RLD: No | RS: No | Type: RX